FAERS Safety Report 23769547 (Version 2)
Quarter: 2024Q2

REPORT INFORMATION
  Report Type: Spontaneous
  Country: GB (occurrence: GB)
  Receive Date: 20240422
  Receipt Date: 20240528
  Transmission Date: 20240716
  Serious: Yes (Death, Life-Threatening)
  Sender: FDA-Public Use
  Company Number: GB-Ascend Therapeutics US, LLC-2155855

PATIENT
  Age: 56 Year
  Sex: Male

DRUGS (2)
  1. ANDROGEL [Suspect]
     Active Substance: TESTOSTERONE
     Indication: Blood testosterone decreased
     Route: 065
  2. TESTOSTERONE [Suspect]
     Active Substance: TESTOSTERONE
     Route: 065

REACTIONS (5)
  - Myocardial infarction [Fatal]
  - Anger [Fatal]
  - Emotional distress [Fatal]
  - Myocardial ischaemia [Fatal]
  - Palpitations [Fatal]

NARRATIVE: CASE EVENT DATE: 20230901
